FAERS Safety Report 5332863-X (Version None)
Quarter: 2007Q2

REPORT INFORMATION
  Report Type: 
  Country: None (occurrence: None)
  Receive Date: 20070521
  Receipt Date: 20070509
  Transmission Date: 20071010
  Serious: Yes (Hospitalization)
  Sender: FDA-Public Use
  Company Number: 2007-01380

PATIENT
  Age: 54 Year
  Sex: Female

DRUGS (1)
  1. VELCADE [Suspect]
     Indication: MULTIPLE MYELOMA
     Dosage: 1.00 MG, INTRAVENOUS
     Route: 042
     Dates: start: 20070213, end: 20070312

REACTIONS (2)
  - COLITIS [None]
  - COLITIS ISCHAEMIC [None]
